FAERS Safety Report 5803836-5 (Version None)
Quarter: 2008Q3

REPORT INFORMATION
  Report Type: 
  Country: None (occurrence: None)
  Receive Date: 20080708
  Receipt Date: 20080703
  Transmission Date: 20090109
  Serious: Yes (Other)
  Sender: FDA-Public Use
  Company Number: DE-BOEHRINGER INGELHEIM GMBH, GERMANY-2008-DE-03625DE

PATIENT
  Sex: Male
  Weight: 62 kg

DRUGS (2)
  1. AGGRENOX [Suspect]
     Indication: CEREBROVASCULAR ACCIDENT PROPHYLAXIS
     Dosage: DIPYRIDAMOLE 200 MG/ACETYLSALICYLIC ACID 25 MG, 2 PER DAY
     Route: 048
     Dates: start: 20080618, end: 20080621
  2. SIMVASTATIN [Concomitant]
     Indication: LIPIDS

REACTIONS (9)
  - ABDOMINAL DISTENSION [None]
  - APATHY [None]
  - CARDIAC FIBRILLATION [None]
  - DEPRESSION [None]
  - FATIGUE [None]
  - HEADACHE [None]
  - INFREQUENT BOWEL MOVEMENTS [None]
  - PAIN IN EXTREMITY [None]
  - SUICIDAL IDEATION [None]
